FAERS Safety Report 23692096 (Version 2)
Quarter: 2024Q2

REPORT INFORMATION
  Report Type: Spontaneous
  Country: US (occurrence: US)
  Receive Date: 20240401
  Receipt Date: 20240410
  Transmission Date: 20240716
  Serious: No
  Sender: FDA-Public Use
  Company Number: US-GSKCCFUS-Case-01936765_AE-107668

PATIENT
  Sex: Female

DRUGS (1)
  1. NUCALA [Suspect]
     Active Substance: MEPOLIZUMAB
     Indication: Product used for unknown indication
     Dosage: 100 MG
     Route: 058
     Dates: start: 2023

REACTIONS (4)
  - Injection site pain [Not Recovered/Not Resolved]
  - Cough [Unknown]
  - Retching [Unknown]
  - Product dose omission issue [Unknown]
